FAERS Safety Report 7660249-1 (Version None)
Quarter: 2011Q3

REPORT INFORMATION
  Report Type: 
  Country: None (occurrence: None)
  Receive Date: 20110805
  Receipt Date: 20110801
  Transmission Date: 20111222
  Serious: Yes (Death, Disabling, Other)
  Sender: FDA-Public Use
  Company Number: PHFR2011GB01268

PATIENT
  Age: 48 Year
  Sex: Male

DRUGS (2)
  1. ZOLEDRONIC ACID [Suspect]
     Indication: METASTASES TO BONE
     Dosage: 4 MG, 4 TIMES PER WEEK
     Route: 042
     Dates: start: 20080401, end: 20091101
  2. SUNITINIB MALATE [Suspect]
     Indication: RENAL CELL CARCINOMA
     Dosage: 50 MG, QD
     Route: 048
     Dates: start: 20080723, end: 20100701

REACTIONS (7)
  - NEOPLASM PROGRESSION [None]
  - OSTEONECROSIS OF JAW [None]
  - BONE FISTULA [None]
  - NEOPLASM MALIGNANT [None]
  - TOOTH ABSCESS [None]
  - EXPOSED BONE IN JAW [None]
  - TOOTH LOSS [None]
